FAERS Safety Report 9351619 (Version 2)
Quarter: 2013Q3

REPORT INFORMATION
  Report Type: Spontaneous
  Country: ZA (occurrence: ZA)
  Receive Date: 20130617
  Receipt Date: 20130716
  Transmission Date: 20140515
  Serious: Yes (Other)
  Sender: FDA-Public Use
  Company Number: ZA-PFIZER INC-2013176150

PATIENT
  Sex: Male

DRUGS (3)
  1. CHAMPIX [Suspect]
     Indication: SMOKING CESSATION THERAPY
     Dosage: 1 MG, DAILY
     Route: 048
     Dates: end: 20130611
  2. AZITHROMYCIN [Concomitant]
     Indication: INFLUENZA LIKE ILLNESS
     Dosage: 500 MG, DAILY
     Route: 048
     Dates: start: 20130606, end: 20130609
  3. WELLBUTRIN SR [Concomitant]
     Indication: DEPRESSION
     Dosage: 150 MG, DAILY
     Route: 048

REACTIONS (4)
  - Dissociative disorder [Recovered/Resolved]
  - Impaired work ability [Recovered/Resolved]
  - Memory impairment [Recovered/Resolved]
  - Influenza like illness [Recovered/Resolved]
